FAERS Safety Report 17490078 (Version 1)
Quarter: 2020Q1

REPORT INFORMATION
  Report Type: Spontaneous
  Country: US (occurrence: US)
  Receive Date: 20200303
  Receipt Date: 20200303
  Transmission Date: 20200409
  Serious: No
  Sender: FDA-Public Use
  Company Number: US-AKORN PHARMACEUTICALS-2019AKN01665

PATIENT
  Age: 14 Year
  Sex: Male
  Weight: 68.93 kg

DRUGS (4)
  1. MYORISAN [Suspect]
     Active Substance: ISOTRETINOIN
     Indication: ACNE
     Dosage: 60 MG, 1X/DAY FOR 30 DAYS
     Route: 048
     Dates: start: 20190308, end: 201904
  2. MYORISAN [Suspect]
     Active Substance: ISOTRETINOIN
     Dosage: 80 MG, 1X/DAY
     Route: 048
     Dates: start: 20190603, end: 201906
  3. MYORISAN [Suspect]
     Active Substance: ISOTRETINOIN
     Dosage: 80 MG, 1X/DAY FOR 30 DAYS
     Route: 048
     Dates: start: 20190405, end: 20190503
  4. MYORISAN [Suspect]
     Active Substance: ISOTRETINOIN
     Indication: ACNE
     Dosage: 40 MG, 1X/DAY FOR 30 DAYS
     Route: 048
     Dates: start: 20190205, end: 201903

REACTIONS (4)
  - Off label use [Recovered/Resolved]
  - Blood triglycerides increased [Unknown]
  - Aspartate aminotransferase increased [Recovered/Resolved]
  - Blood cholesterol increased [Unknown]

NARRATIVE: CASE EVENT DATE: 20190205
